FAERS Safety Report 4935155-3 (Version None)
Quarter: 2006Q1

REPORT INFORMATION
  Report Type: 
  Country: None (occurrence: None)
  Receive Date: 20060306
  Receipt Date: 20060306
  Transmission Date: 20060701
  Serious: No
  Sender: FDA-Public Use
  Company Number: None

PATIENT
  Sex: Male
  Weight: 70.7611 kg

DRUGS (2)
  1. DESFERAL [Suspect]
     Indication: BLOOD IRON INCREASED
     Dosage: 2GM  S.Q. 3 TIMES A WEEK
     Route: 058
     Dates: start: 20060207
  2. DESFERAL [Suspect]
     Indication: SICKLE CELL ANAEMIA
     Dosage: 2GM  S.Q. 3 TIMES A WEEK
     Route: 058
     Dates: start: 20060207

REACTIONS (2)
  - TINNITUS [None]
  - TREATMENT NONCOMPLIANCE [None]
